FAERS Safety Report 13558162 (Version 2)
Quarter: 2017Q3

REPORT INFORMATION
  Report Type: Report from Study
  Country: CA (occurrence: CA)
  Receive Date: 20170518
  Receipt Date: 20170825
  Transmission Date: 20171127
  Serious: Yes (Hospitalization, Other)
  Sender: FDA-Public Use
  Company Number: CA-GLAXOSMITHKLINE-CA2017GSK071157

PATIENT
  Sex: Female

DRUGS (1)
  1. SALBUTAMOL SULPHATE [Suspect]
     Active Substance: ALBUTEROL SULFATE
     Indication: PRODUCT USED FOR UNKNOWN INDICATION

REACTIONS (12)
  - Bronchospasm [Recovered/Resolved]
  - Asthmatic crisis [Unknown]
  - Asthma [Recovered/Resolved]
  - Immunosuppression [Unknown]
  - Dyspnoea [Recovered/Resolved]
  - Bone disorder [Unknown]
  - Rheumatoid arthritis [Unknown]
  - Mastectomy [Unknown]
  - Superinfection [Unknown]
  - Pain [Unknown]
  - Breast cancer [Unknown]
  - Arthropathy [Unknown]
